FAERS Safety Report 11625045 (Version 1)
Quarter: 2015Q4

REPORT INFORMATION
  Report Type: Report from Study
  Country: MX (occurrence: MX)
  Receive Date: 20151013
  Receipt Date: 20151013
  Transmission Date: 20160304
  Serious: Yes (Other)
  Sender: FDA-Public Use
  Company Number: PHHY2015MX109314

PATIENT
  Age: 73 Year
  Sex: Female
  Weight: 70 kg

DRUGS (12)
  1. BEZAFIBRATE [Concomitant]
     Active Substance: BEZAFIBRATE
     Indication: BLOOD CHOLESTEROL INCREASED
     Dosage: 2 OT, QD
     Route: 048
  2. ASPIRIN PROTECT [Concomitant]
     Active Substance: ASPIRIN
     Indication: SUBDURAL EFFUSION
     Dosage: 1 DF, QD
     Route: 048
  3. EXELON PATCH [Suspect]
     Active Substance: RIVASTIGMINE
     Indication: CARDIAC FAILURE
     Dosage: 9 MG, UNK
     Route: 062
  4. EXELON PATCH [Suspect]
     Active Substance: RIVASTIGMINE
     Indication: ARRHYTHMIA
     Dosage: PATCH 5 (CM2)
     Route: 062
     Dates: start: 201403
  5. NOOTROPIL [Concomitant]
     Active Substance: PIRACETAM
     Indication: NERVOUS SYSTEM DISORDER
     Dosage: 1 OT, QD
     Route: 048
  6. PHENYTOIN. [Concomitant]
     Active Substance: PHENYTOIN
     Indication: CEREBRAL HAEMORRHAGE
     Dosage: 1 DF, QD
     Route: 065
  7. EXELON PATCH [Suspect]
     Active Substance: RIVASTIGMINE
     Dosage: PATCH 5 (CM2)
     Route: 062
  8. GLUCOVANCE [Concomitant]
     Active Substance: GLYBURIDE\METFORMIN HYDROCHLORIDE
     Indication: DIABETES MELLITUS
     Dosage: 2 DF, QD
     Route: 048
  9. EPAMIN [Concomitant]
     Active Substance: PHENYTOIN SODIUM
     Indication: SUBDURAL EFFUSION
     Dosage: 2 OT, QD
     Route: 048
  10. EBIXA [Concomitant]
     Active Substance: MEMANTINE HYDROCHLORIDE
     Indication: NERVOUS SYSTEM DISORDER
     Dosage: 1 OT, QD
     Route: 048
  11. BEZAFIBRATE [Concomitant]
     Active Substance: BEZAFIBRATE
     Indication: CARDIAC DISORDER
  12. ASPIRIN PROTECT [Concomitant]
     Active Substance: ASPIRIN
     Indication: PROPHYLAXIS

REACTIONS (10)
  - Nausea [Recovered/Resolved]
  - Diabetes mellitus inadequate control [Not Recovered/Not Resolved]
  - Drug dispensing error [Recovered/Resolved]
  - Arrhythmia [Recovered/Resolved]
  - Blood pressure increased [Recovered/Resolved]
  - Product use issue [Not Recovered/Not Resolved]
  - Tachycardia [Recovered/Resolved]
  - Blood pressure inadequately controlled [Not Recovered/Not Resolved]
  - Kidney infection [Recovered/Resolved]
  - Blood glucose increased [Recovered/Resolved]

NARRATIVE: CASE EVENT DATE: 201403
